FAERS Safety Report 26003744 (Version 2)
Quarter: 2025Q4

REPORT INFORMATION
  Report Type: Spontaneous
  Country: US (occurrence: US)
  Receive Date: 20251106
  Receipt Date: 20251221
  Transmission Date: 20260118
  Serious: No
  Sender: SANOFI AVENTIS
  Company Number: US-SA-2025SA323503

PATIENT
  Age: 73 Year
  Sex: Female
  Weight: 56.69 kg

DRUGS (2)
  1. DUPIXENT [Suspect]
     Active Substance: DUPILUMAB
     Indication: Asthma
     Dosage: 300 MG, QOW
     Route: 058
     Dates: start: 202508, end: 2025
  2. DUPIXENT [Suspect]
     Active Substance: DUPILUMAB
     Indication: Chronic obstructive pulmonary disease

REACTIONS (2)
  - Asthma [Unknown]
  - Chronic obstructive pulmonary disease [Recovered/Resolved]

NARRATIVE: CASE EVENT DATE: 20250101
